FAERS Safety Report 8530648-4 (Version None)
Quarter: 2012Q2

REPORT INFORMATION
  Report Type: 
  Country: None (occurrence: None)
  Receive Date: 20120411
  Receipt Date: 20111229
  Transmission Date: 20120825
  Serious: No
  Sender: FDA-Public Use
  Company Number: PHEH2011US012906

PATIENT
  Age: 65 Year
  Sex: Female
  Weight: 128 kg

DRUGS (6)
  1. AMLODIPINE [Concomitant]
  2. HYDROCHLOROTHIAZIDE [Concomitant]
  3. ASCORBIC ACID [Concomitant]
  4. OMYTEB [Concomitant]
  5. ESTROGENS SOL/INJ [Concomitant]
  6. ILARIS [Suspect]
     Indication: CRYOPYRIN ASSOCIATED PERIODIC SYNDROME
     Dosage: 150 MG, SUBCUTANEOUS
     Route: 058
     Dates: start: 20080901

REACTIONS (3)
  - PAIN [None]
  - ANXIETY [None]
  - CRYING [None]
